FAERS Safety Report 6919367-5 (Version None)
Quarter: 2010Q3

REPORT INFORMATION
  Report Type: 
  Country: None (occurrence: None)
  Receive Date: 20100811
  Receipt Date: 20100803
  Transmission Date: 20110219
  Serious: Yes (Other)
  Sender: FDA-Public Use
  Company Number: A0874767A

PATIENT
  Age: 29 Year
  Sex: Female
  Weight: 89.4 kg

DRUGS (5)
  1. FLOLAN [Suspect]
     Indication: PULMONARY ARTERIAL HYPERTENSION
     Dosage: 16.9NGKM CONTINUOUS
     Dates: start: 20100619
  2. OXYCODONE [Concomitant]
     Dosage: 5MG AS REQUIRED
     Route: 048
  3. ZOFRAN [Concomitant]
     Dosage: 4MG AS REQUIRED
     Route: 048
  4. ACETAMINOPHEN [Concomitant]
     Dosage: 650MG AS REQUIRED
     Route: 048
  5. PROCHLORPERAZINE [Concomitant]
     Dosage: 10MG AS DIRECTED
     Route: 048

REACTIONS (4)
  - ADVERSE EVENT [None]
  - CENTRAL VENOUS CATHETERISATION [None]
  - RASH [None]
  - VAGINAL HAEMORRHAGE [None]
